FAERS Safety Report 25919450 (Version 1)
Quarter: 2025Q4

REPORT INFORMATION
  Report Type: Spontaneous
  Country: EU (occurrence: EU)
  Receive Date: 20251014
  Receipt Date: 20251014
  Transmission Date: 20260117
  Serious: Yes (Death)
  Sender: SHIONOGI
  Company Number: EU-shionogi-202500010967

PATIENT
  Sex: Male

DRUGS (1)
  1. CEFIDEROCOL [Suspect]
     Active Substance: CEFIDEROCOL
     Indication: Product used for unknown indication

REACTIONS (1)
  - Death [Fatal]
